FAERS Safety Report 18707670 (Version 1)
Quarter: 2021Q1

REPORT INFORMATION
  Report Type: Spontaneous
  Country: US (occurrence: US)
  Receive Date: 20210106
  Receipt Date: 20210106
  Transmission Date: 20210419
  Serious: No
  Sender: FDA-Public Use
  Company Number: US-PFIZER INC-2021002928

PATIENT
  Age: 55 Year
  Sex: Female

DRUGS (5)
  1. TRIAMCINOLONE [Suspect]
     Active Substance: TRIAMCINOLONE
     Dosage: UNK
  2. VANCOMYCIN HCL [Suspect]
     Active Substance: VANCOMYCIN HYDROCHLORIDE
     Dosage: UNK
  3. TIZANIDINE. [Suspect]
     Active Substance: TIZANIDINE
     Dosage: UNK
  4. DULOXETINE. [Suspect]
     Active Substance: DULOXETINE
     Dosage: UNK
  5. CEFTRIAXONE. [Suspect]
     Active Substance: CEFTRIAXONE
     Dosage: UNK

REACTIONS (1)
  - Drug hypersensitivity [Unknown]
